FAERS Safety Report 4465965-0 (Version None)
Quarter: 2004Q4

REPORT INFORMATION
  Report Type: 
  Country: None (occurrence: None)
  Receive Date: 20041005
  Receipt Date: 20040921
  Transmission Date: 20050328
  Serious: Yes (Hospitalization, Other)
  Sender: FDA-Public Use
  Company Number: SE-BRISTOL-MYERS SQUIBB COMPANY-12710828

PATIENT
  Age: 63 Year
  Sex: Male

DRUGS (4)
  1. LYSODREN [Suspect]
     Indication: ADRENAL CARCINOMA
     Route: 048
     Dates: start: 20020130, end: 20020625
  2. LANSOPRAZOLE [Concomitant]
     Dates: start: 20020409
  3. ZANOSAR [Concomitant]
  4. CORTAL [Concomitant]

REACTIONS (2)
  - CHOLELITHIASIS [None]
  - HEPATIC FAILURE [None]
